FAERS Safety Report 7089717-0 (Version None)
Quarter: 2010Q4

REPORT INFORMATION
  Report Type: 
  Country: None (occurrence: None)
  Receive Date: 20101108
  Receipt Date: 20100507
  Transmission Date: 20110411
  Serious: Yes (Other)
  Sender: FDA-Public Use
  Company Number: US-ABBOTT-10P-163-0641338-00

PATIENT
  Sex: Female
  Weight: 75 kg

DRUGS (16)
  1. TRICOR [Suspect]
     Route: 065
  2. LIPITOR [Suspect]
     Indication: BLOOD TRIGLYCERIDES ABNORMAL
     Route: 048
  3. GEMFIBROZIL [Suspect]
     Indication: BLOOD TRIGLYCERIDES INCREASED
     Route: 065
  4. LEVOTHYROXINE [Concomitant]
  5. NIACIN [Concomitant]
  6. AMITRIPTYLINE HCL [Concomitant]
  7. COZAAR [Concomitant]
  8. LYRICA [Concomitant]
  9. RANITIDINE [Concomitant]
  10. AMLODIPINE [Concomitant]
  11. VICODIN [Concomitant]
  12. ELAVIL [Concomitant]
  13. CYMBALTA [Concomitant]
  14. NALBUPHINE [Concomitant]
  15. PROMETHAZINE [Concomitant]
  16. BENADRYL [Concomitant]

REACTIONS (2)
  - MIGRAINE [None]
  - MUSCLE SPASMS [None]
